FAERS Safety Report 6307997-3 (Version None)
Quarter: 2009Q3

REPORT INFORMATION
  Report Type: 
  Country: None (occurrence: None)
  Receive Date: 20090810
  Receipt Date: 20090727
  Transmission Date: 20100115
  Serious: Yes (Other)
  Sender: FDA-Public Use
  Company Number: MC200900263

PATIENT
  Age: 11 Year
  Sex: Female
  Weight: 68 kg

DRUGS (8)
  1. ANGIOMAX [Suspect]
     Indication: PROPHYLAXIS
     Dosage: 125 UG/KG, BOLUS, INTRAVENOUS; 240 UG/KG, HR, INTRAVENOUS
     Route: 042
  2. WARFARIN SODIUM [Suspect]
     Dosage: 5 MG, QOD, ORAL
     Route: 048
  3. CEFAZOLIN [Suspect]
  4. RANITIDINE [Suspect]
  5. HEPARIN [Concomitant]
  6. ACTIVASE [Concomitant]
  7. ENOXAPARIN (ENOXOAPARIN) [Concomitant]
  8. CHLORAL HYDRATE (CHLORAL HYDRATE) [Concomitant]

REACTIONS (19)
  - ABDOMINAL PAIN [None]
  - ANXIETY [None]
  - BLOOD CREATININE INCREASED [None]
  - DEEP VEIN THROMBOSIS [None]
  - FIBRIN D DIMER INCREASED [None]
  - HEPARIN-INDUCED THROMBOCYTOPENIA [None]
  - HYPERTENSION [None]
  - INTERNATIONAL NORMALISED RATIO INCREASED [None]
  - KLEBSIELLA SEPSIS [None]
  - PLATELET COUNT DECREASED [None]
  - PNEUMOTHORAX [None]
  - PULMONARY EMBOLISM [None]
  - PULMONARY HAEMORRHAGE [None]
  - PULMONARY HYPERTENSION [None]
  - RENAL DISORDER [None]
  - RENAL VEIN THROMBOSIS [None]
  - RESPIRATORY DISTRESS [None]
  - RESPIRATORY FAILURE [None]
  - VENA CAVA THROMBOSIS [None]
